FAERS Safety Report 15487227 (Version 1)
Quarter: 2018Q4

REPORT INFORMATION
  Report Type: Spontaneous
  Country: US (occurrence: US)
  Receive Date: 20181011
  Receipt Date: 20181011
  Transmission Date: 20190205
  Serious: Yes (Other)
  Sender: FDA-Public Use
  Company Number: US-009507513-1810USA003275

PATIENT
  Age: 55 Year
  Sex: Male

DRUGS (1)
  1. ISENTRESS [Suspect]
     Active Substance: RALTEGRAVIR POTASSIUM
     Indication: HIV INFECTION
     Dosage: ONE TABLET (400 MG) TWICE DAILY
     Route: 048
     Dates: start: 2011

REACTIONS (5)
  - Laryngeal cancer [Not Recovered/Not Resolved]
  - Dysphagia [Recovered/Resolved]
  - Foreign body in respiratory tract [Unknown]
  - Dysphagia [Not Recovered/Not Resolved]
  - Wrong technique in product usage process [Unknown]

NARRATIVE: CASE EVENT DATE: 2016
